FAERS Safety Report 8263584-1 (Version None)
Quarter: 2012Q2

REPORT INFORMATION
  Report Type: 
  Country: None (occurrence: None)
  Receive Date: 20120405
  Receipt Date: 20120305
  Transmission Date: 20120825
  Serious: Yes (Other)
  Sender: FDA-Public Use
  Company Number: SG-BAYER-2012-013816

PATIENT
  Age: 56 Year
  Sex: Male

DRUGS (5)
  1. AVELOX [Suspect]
     Indication: INFLUENZA
     Dosage: 180 MG, HS
     Route: 048
     Dates: start: 20111001, end: 20111005
  2. ACTIFED EXPECTORANT [Concomitant]
     Indication: INFLUENZA
     Dosage: 10 ML, TID
     Route: 048
  3. ACTIFED EXPECTORANT [Concomitant]
     Indication: ASTHMA
  4. FEXOFENADINE HCL [Concomitant]
     Route: 048
  5. AVELOX [Suspect]
     Indication: ASTHMA

REACTIONS (2)
  - PHIMOSIS [None]
  - GENITAL DISCOMFORT [None]
